FAERS Safety Report 17047743 (Version 1)
Quarter: 2019Q4

REPORT INFORMATION
  Report Type: Spontaneous
  Country: US (occurrence: US)
  Receive Date: 20191119
  Receipt Date: 20191119
  Transmission Date: 20200122
  Serious: No
  Sender: FDA-Public Use
  Company Number: US-JNJFOC-20191111707

PATIENT
  Age: 46 Year
  Sex: Male
  Weight: 72.64 kg

DRUGS (1)
  1. STELARA [Suspect]
     Active Substance: USTEKINUMAB
     Indication: CROHN^S DISEASE
     Dosage: LAST DOSE OF USTEKINUMAB WAS ADMINISTERED ON 05-OCT-2019
     Route: 058
     Dates: start: 201903

REACTIONS (1)
  - Viral titre decreased [Not Recovered/Not Resolved]

NARRATIVE: CASE EVENT DATE: 201906
